FAERS Safety Report 4425051-2 (Version None)
Quarter: 2004Q3

REPORT INFORMATION
  Report Type: 
  Country: None (occurrence: None)
  Receive Date: 20040813
  Receipt Date: 20040609
  Transmission Date: 20050211
  Serious: No
  Sender: FDA-Public Use
  Company Number: PHBS2004JP07624

PATIENT
  Sex: Male

DRUGS (3)
  1. DIOVAN [Suspect]
     Route: 048
  2. CALCIUM CHANNEL BLOCKERS [Concomitant]
  3. ANTIHYPERTENSIVES [Concomitant]
     Route: 048

REACTIONS (1)
  - MYALGIA [None]
